FAERS Safety Report 16849409 (Version 1)
Quarter: 2019Q3

REPORT INFORMATION
  Report Type: Report from Study
  Country: IT (occurrence: IT)
  Receive Date: 20190925
  Receipt Date: 20190925
  Transmission Date: 20191005
  Serious: Yes (Hospitalization)
  Sender: FDA-Public Use
  Company Number: IT-ACCORD-155706

PATIENT
  Age: 79 Year
  Sex: Male

DRUGS (5)
  1. LIXIANA [Concomitant]
     Active Substance: EDOXABAN TOSYLATE
     Indication: ATRIAL FIBRILLATION
     Route: 048
  2. CONGESCOR [Concomitant]
     Active Substance: BISOPROLOL
     Indication: ATRIAL FIBRILLATION
     Route: 048
  3. OLMESARTAN/OLMESARTAN MEDOXOMIL [Suspect]
     Active Substance: OLMESARTAN MEDOXOMIL
     Indication: HYPERTENSION
     Route: 048
  4. TORVAST [Concomitant]
     Active Substance: ATORVASTATIN
     Indication: DYSLIPIDAEMIA
     Route: 048
  5. ANTRA [Concomitant]
     Active Substance: OMEPRAZOLE
     Indication: GASTROOESOPHAGEAL REFLUX DISEASE
     Route: 048

REACTIONS (2)
  - Atrial fibrillation [Recovered/Resolved with Sequelae]
  - Dyspnoea [Recovered/Resolved with Sequelae]

NARRATIVE: CASE EVENT DATE: 20190726
